FAERS Safety Report 13875923 (Version 2)
Quarter: 2017Q3

REPORT INFORMATION
  Report Type: Spontaneous
  Country: GB (occurrence: GB)
  Receive Date: 20170817
  Receipt Date: 20170828
  Transmission Date: 20171127
  Serious: Yes (Life-Threatening, Other)
  Sender: FDA-Public Use
  Company Number: GB-AUROBINDO-AUR-APL-2017-38677

PATIENT
  Age: 19 Year
  Sex: Female

DRUGS (4)
  1. RANITIDINE. [Suspect]
     Active Substance: RANITIDINE
     Dosage: HIGH DOSE
  2. RANITIDINE. [Suspect]
     Active Substance: RANITIDINE
     Dosage: HIGH DOSE
  3. RANITIDINE. [Suspect]
     Active Substance: RANITIDINE
     Indication: GASTROOESOPHAGEAL REFLUX DISEASE
     Dosage: AT NIGHT, HIGH DOSE
     Route: 065
  4. RANITIDINE. [Suspect]
     Active Substance: RANITIDINE
     Dosage: AT NIGHT, HIGH DOSE

REACTIONS (2)
  - Withdrawal syndrome [Unknown]
  - Anaphylactic reaction [Unknown]
